FAERS Safety Report 22827175 (Version 3)
Quarter: 2025Q1

REPORT INFORMATION
  Report Type: Spontaneous
  Country: US (occurrence: US)
  Receive Date: 20230816
  Receipt Date: 20250223
  Transmission Date: 20250409
  Serious: No
  Sender: LUPIN
  Company Number: US-LUPIN PHARMACEUTICALS INC.-2023-06684

PATIENT

DRUGS (2)
  1. ALBUTEROL SULFATE [Suspect]
     Active Substance: ALBUTEROL SULFATE
     Indication: Asthma
     Dosage: UNK, BID, 2 TIMES IN EVENING AND 2 IN MORNING
     Dates: start: 20230723
  2. ALBUTEROL SULFATE [Suspect]
     Active Substance: ALBUTEROL SULFATE
     Dosage: UNK UNK, BID (2 PUFFS 2 TIMES A DAY)
     Dates: start: 20230811

REACTIONS (6)
  - Chest discomfort [Unknown]
  - Asthma [Unknown]
  - Wheezing [Unknown]
  - Incorrect dose administered by device [Unknown]
  - Device delivery system issue [Unknown]
  - Drug dose omission by device [Unknown]
